FAERS Safety Report 25042534 (Version 1)
Quarter: 2025Q1

REPORT INFORMATION
  Report Type: Spontaneous
  Country: FR (occurrence: FR)
  Receive Date: 20250305
  Receipt Date: 20250305
  Transmission Date: 20250408
  Serious: Yes (Hospitalization)
  Sender: TEVA
  Company Number: None

PATIENT
  Age: 62 Year
  Sex: Female

DRUGS (6)
  1. QUETIAPINE [Suspect]
     Active Substance: QUETIAPINE
     Indication: Behaviour disorder
     Route: 048
     Dates: start: 20230804, end: 20230809
  2. QUETIAPINE [Suspect]
     Active Substance: QUETIAPINE
     Indication: Behaviour disorder
     Route: 048
     Dates: start: 20230803, end: 20230803
  3. LOXAPINE [Suspect]
     Active Substance: LOXAPINE
     Indication: Behaviour disorder
     Route: 048
     Dates: start: 201608, end: 20230809
  4. HALOPERIDOL [Suspect]
     Active Substance: HALOPERIDOL
     Indication: Behaviour disorder
     Route: 030
     Dates: start: 201202, end: 201611
  5. HALOPERIDOL [Suspect]
     Active Substance: HALOPERIDOL
     Indication: Behaviour disorder
     Route: 030
     Dates: start: 201611, end: 202307
  6. HALOPERIDOL [Suspect]
     Active Substance: HALOPERIDOL
     Indication: Behaviour disorder
     Route: 048
     Dates: start: 202307, end: 20230809

REACTIONS (1)
  - Neuroleptic malignant syndrome [Recovered/Resolved]

NARRATIVE: CASE EVENT DATE: 20230807
